FAERS Safety Report 7785668-4 (Version None)
Quarter: 2011Q3

REPORT INFORMATION
  Report Type: 
  Country: None (occurrence: None)
  Receive Date: 20110929
  Receipt Date: 20110929
  Transmission Date: 20111222
  Serious: Yes (Congenital Anomaly)
  Sender: FDA-Public Use
  Company Number: None

PATIENT
  Age: 1 Day
  Sex: Male
  Weight: 3.1 kg

DRUGS (1)
  1. ZONEGRAN [Suspect]

REACTIONS (2)
  - MATERNAL DRUGS AFFECTING FOETUS [None]
  - EAR DISORDER [None]
